FAERS Safety Report 15057483 (Version 2)
Quarter: 2020Q1

REPORT INFORMATION
  Report Type: Spontaneous
  Country: GB (occurrence: GB)
  Receive Date: 20180625
  Receipt Date: 20200215
  Transmission Date: 20200409
  Serious: Yes (Other)
  Sender: FDA-Public Use
  Company Number: GB-SUN PHARMACEUTICAL INDUSTRIES LTD-2018RR-176500

PATIENT
  Age: 77 Year
  Sex: Female

DRUGS (5)
  1. DENOSUMAB HOSPIRA [Suspect]
     Active Substance: DENOSUMAB
     Indication: BREAST CANCER
     Dosage: 120 MG, UNK
     Route: 058
     Dates: start: 20170929
  2. PALBOCICLIB [Suspect]
     Active Substance: PALBOCICLIB
     Indication: BREAST CANCER
     Dosage: 100 MG, UNK
     Route: 065
  3. PALBOCICLIB [Suspect]
     Active Substance: PALBOCICLIB
     Dosage: 125 MG 1 X DAY, 21 DAYS ON 7 DAYS OFF 3/1 SCHEDULE
     Route: 065
     Dates: start: 20170929
  4. PALBOCICLIB [Suspect]
     Active Substance: PALBOCICLIB
     Dosage: 75 MG, UNK
     Route: 065
  5. LETROZOLE. [Suspect]
     Active Substance: LETROZOLE
     Indication: BREAST CANCER
     Dosage: 2.5 MG, 1X/DAY
     Route: 065
     Dates: start: 20170929

REACTIONS (5)
  - Thrombocytopenia [Recovering/Resolving]
  - Fatigue [Unknown]
  - Hot flush [Not Recovered/Not Resolved]
  - Pain [Recovering/Resolving]
  - Neutropenia [Recovering/Resolving]
